FAERS Safety Report 10414704 (Version 2)
Quarter: 2015Q1

REPORT INFORMATION
  Report Type: Report from Study
  Country: BR (occurrence: BR)
  Receive Date: 20140828
  Receipt Date: 20150120
  Transmission Date: 20150720
  Serious: Yes (Other)
  Sender: FDA-Public Use
  Company Number: BR-AMGEN-BRACT2014065283

PATIENT
  Age: 77 Year
  Sex: Female

DRUGS (1)
  1. PROLIA [Suspect]
     Active Substance: DENOSUMAB
     Indication: OSTEOPOROSIS
     Dosage: UNK
     Route: 065
     Dates: start: 20140722

REACTIONS (3)
  - Arthralgia [Recovered/Resolved]
  - Rheumatoid arthritis [Recovered/Resolved]
  - Angiopathy [Recovered/Resolved]

NARRATIVE: CASE EVENT DATE: 20140723
